FAERS Safety Report 8028893-X (Version None)
Quarter: 2012Q1

REPORT INFORMATION
  Report Type: 
  Country: None (occurrence: None)
  Receive Date: 20120106
  Receipt Date: 20111228
  Transmission Date: 20120608
  Serious: Yes (Other)
  Sender: FDA-Public Use
  Company Number: JP-GLAXOSMITHKLINE-B0764285A

PATIENT
  Sex: Female

DRUGS (13)
  1. ALDACTONE [Concomitant]
     Dosage: 50MG PER DAY
     Route: 048
  2. AMITRIPTYLINE HCL [Suspect]
     Indication: PRODUCT USED FOR UNKNOWN INDICATION
     Dosage: 140MG PER DAY
     Route: 048
     Dates: end: 20111118
  3. LANSOPRAZOLE [Concomitant]
     Dosage: 15MG PER DAY
     Route: 048
     Dates: start: 20111108
  4. AMITRIPTYLINE HCL [Suspect]
     Dosage: 40MG PER DAY
     Route: 048
  5. TORSEMIDE [Concomitant]
     Dosage: 8MG PER DAY
     Route: 048
  6. FUROSEMIDE [Concomitant]
     Dosage: 40MG PER DAY
     Route: 048
  7. UNKNOWN DRUG [Concomitant]
     Dosage: 15MG PER DAY
     Route: 048
     Dates: start: 20111108
  8. LISINOPRIL [Concomitant]
     Dosage: 2.5MG PER DAY
     Route: 048
  9. LISINOPRIL [Concomitant]
     Dosage: 5MG PER DAY
     Route: 048
  10. PAXIL [Suspect]
     Indication: DEPRESSION
     Dosage: 40MG PER DAY
     Route: 048
  11. CARVEDILOL [Concomitant]
     Dosage: 1.25MG PER DAY
     Route: 048
     Dates: start: 20111108
  12. ASPARA K [Concomitant]
     Dosage: 1200MG PER DAY
     Route: 048
  13. WARFARIN SODIUM [Concomitant]
     Dosage: 1.25MG PER DAY
     Route: 048

REACTIONS (5)
  - BUNDLE BRANCH BLOCK RIGHT [None]
  - ELECTROCARDIOGRAM T WAVE ABNORMAL [None]
  - QRS AXIS ABNORMAL [None]
  - ELECTROCARDIOGRAM QT PROLONGED [None]
  - ELECTROCARDIOGRAM QT SHORTENED [None]
